FAERS Safety Report 25379214 (Version 1)
Quarter: 2025Q2

REPORT INFORMATION
  Report Type: Spontaneous
  Country: AR (occurrence: AR)
  Receive Date: 20250530
  Receipt Date: 20250530
  Transmission Date: 20250716
  Serious: No
  Sender: PFIZER
  Company Number: AR-PFIZER INC-202500107795

PATIENT

DRUGS (1)
  1. GENOTROPIN [Suspect]
     Active Substance: SOMATROPIN
     Indication: Short stature
     Dates: start: 20170111

REACTIONS (1)
  - Device physical property issue [Unknown]
